FAERS Safety Report 17789078 (Version 3)
Quarter: 2020Q2

REPORT INFORMATION
  Report Type: Spontaneous
  Country: US (occurrence: US)
  Receive Date: 20200515
  Receipt Date: 20200601
  Transmission Date: 20200714
  Serious: Yes (Hospitalization, Other)
  Sender: FDA-Public Use
  Company Number: US-AUROBINDO-AUR-APL-2020-024383

PATIENT

DRUGS (1)
  1. ALPRAZOLAM. [Suspect]
     Active Substance: ALPRAZOLAM
     Indication: PRODUCT USED FOR UNKNOWN INDICATION
     Dosage: UNK
     Route: 065
     Dates: end: 20190911

REACTIONS (51)
  - Blister [Recovering/Resolving]
  - Pain [Recovering/Resolving]
  - Memory impairment [Recovering/Resolving]
  - Anxiety [Recovering/Resolving]
  - Headache [Recovering/Resolving]
  - Vitreous floaters [Recovering/Resolving]
  - Nephrolithiasis [Recovering/Resolving]
  - Kidney infection [Recovering/Resolving]
  - Condition aggravated [Recovering/Resolving]
  - Feeling abnormal [Recovering/Resolving]
  - Bruxism [Recovering/Resolving]
  - Gingival disorder [Recovering/Resolving]
  - Psychomotor retardation [Recovering/Resolving]
  - Lacrimation increased [Recovering/Resolving]
  - Chest discomfort [Recovering/Resolving]
  - Restlessness [Recovering/Resolving]
  - Pruritus [Recovering/Resolving]
  - Confusional state [Recovering/Resolving]
  - Fatigue [Recovering/Resolving]
  - Toothache [Recovering/Resolving]
  - Mood swings [Recovering/Resolving]
  - Visual impairment [Recovering/Resolving]
  - Anosmia [Recovering/Resolving]
  - Suicidal ideation [Recovering/Resolving]
  - Altered state of consciousness [Recovering/Resolving]
  - Seizure [Recovering/Resolving]
  - Eye burns [Recovering/Resolving]
  - Back pain [Recovering/Resolving]
  - Chills [Recovering/Resolving]
  - Gait inability [Recovering/Resolving]
  - Depression [Recovering/Resolving]
  - Fear of animals [Recovering/Resolving]
  - Paraesthesia [Recovering/Resolving]
  - Urinary tract disorder [Recovering/Resolving]
  - Nightmare [Recovering/Resolving]
  - Loss of personal independence in daily activities [Recovering/Resolving]
  - Postural orthostatic tachycardia syndrome [Recovering/Resolving]
  - Abdominal distension [Recovering/Resolving]
  - Abdominal discomfort [Recovering/Resolving]
  - Nausea [Recovering/Resolving]
  - Communication disorder [Recovering/Resolving]
  - Hyperhidrosis [Recovering/Resolving]
  - Tinnitus [Recovering/Resolving]
  - Withdrawal syndrome [Recovering/Resolving]
  - Arthralgia [Recovering/Resolving]
  - Noninfective gingivitis [Recovering/Resolving]
  - Fear [Recovering/Resolving]
  - Muscular weakness [Recovering/Resolving]
  - Dizziness postural [Recovering/Resolving]
  - Vision blurred [Recovering/Resolving]
  - Irritability [Recovering/Resolving]

NARRATIVE: CASE EVENT DATE: 20170115
